FAERS Safety Report 5695959-9 (Version None)
Quarter: 2008Q2

REPORT INFORMATION
  Report Type: 
  Country: None (occurrence: None)
  Receive Date: 20080407
  Receipt Date: 20080402
  Transmission Date: 20081010
  Serious: Yes (Life-Threatening, Hospitalization)
  Sender: FDA-Public Use
  Company Number: FR-ASTRAZENECA-2008CG00510

PATIENT
  Age: 16140 Day
  Sex: Male

DRUGS (14)
  1. NEXIUM [Suspect]
     Route: 048
     Dates: start: 20080105, end: 20080128
  2. OFLOCET [Suspect]
     Indication: INFECTED SKIN ULCER
     Route: 048
     Dates: start: 20071204, end: 20080124
  3. BACTRIM [Suspect]
     Indication: INFECTED SKIN ULCER
     Dosage: 1600 + 320 MG DAILY
     Route: 048
     Dates: start: 20071212, end: 20080124
  4. LOVENOX [Suspect]
     Indication: DEEP VEIN THROMBOSIS
     Route: 058
     Dates: start: 20071212, end: 20080122
  5. PREVISCAN [Suspect]
     Route: 048
     Dates: start: 20080105, end: 20080124
  6. PARACETAMOL [Concomitant]
     Indication: PAIN
     Route: 048
     Dates: start: 20080105
  7. EQUANIL [Concomitant]
     Route: 048
  8. LEPTICUR [Concomitant]
     Route: 048
  9. TERCIAN [Concomitant]
     Indication: NEUROSIS
     Route: 048
  10. ZOPICLONE [Concomitant]
     Indication: INSOMNIA
     Route: 048
  11. DAFLON [Concomitant]
     Route: 048
  12. AIROMIR [Concomitant]
     Route: 055
  13. QVAR 40 [Concomitant]
     Route: 055
  14. FLUANXOL [Concomitant]
     Indication: NEUROSIS
     Dosage: 100 MG EVERY 15 DAYS
     Route: 030

REACTIONS (1)
  - DRUG RASH WITH EOSINOPHILIA AND SYSTEMIC SYMPTOMS [None]
